FAERS Safety Report 14571007 (Version 2)
Quarter: 2018Q2

REPORT INFORMATION
  Report Type: Spontaneous
  Country: US (occurrence: US)
  Receive Date: 20180226
  Receipt Date: 20180508
  Transmission Date: 20180711
  Serious: Yes (Other)
  Sender: FDA-Public Use
  Company Number: US-ROCHE-2077665

PATIENT
  Age: 68 Year
  Sex: Male

DRUGS (3)
  1. XOLAIR [Suspect]
     Active Substance: OMALIZUMAB
     Route: 065
     Dates: start: 20171228
  2. XOLAIR [Suspect]
     Active Substance: OMALIZUMAB
     Dosage: 12TH INJECTIONS
     Route: 065
     Dates: start: 20171128
  3. XOLAIR [Suspect]
     Active Substance: OMALIZUMAB
     Indication: IDIOPATHIC URTICARIA
     Route: 065
     Dates: start: 20170118

REACTIONS (5)
  - Urticaria [Unknown]
  - Angioedema [Unknown]
  - Urticaria [Recovered/Resolved]
  - Hepatic steatosis [Unknown]
  - Lip swelling [Recovered/Resolved]
